FAERS Safety Report 18118865 (Version 1)
Quarter: 2020Q3

REPORT INFORMATION
  Report Type: Spontaneous
  Country: US (occurrence: US)
  Receive Date: 20200806
  Receipt Date: 20200806
  Transmission Date: 20201103
  Serious: Yes (Life-Threatening, Disabling, Other)
  Sender: FDA-Public Use
  Company Number: None

PATIENT
  Age: 28 Year
  Sex: Female
  Weight: 136.08 kg

DRUGS (1)
  1. NEXPLANON [Suspect]
     Active Substance: ETONOGESTREL
     Dates: start: 20191211

REACTIONS (8)
  - Migraine [None]
  - Depression [None]
  - Pain [None]
  - Breast pain [None]
  - Thrombosis [None]
  - Vein disorder [None]
  - Weight increased [None]
  - Headache [None]
